FAERS Safety Report 11634248 (Version 1)
Quarter: 2015Q4

REPORT INFORMATION
  Report Type: Spontaneous
  Country: US (occurrence: US)
  Receive Date: 20151015
  Receipt Date: 20151015
  Transmission Date: 20160304
  Serious: Yes (Congenital Anomaly)
  Sender: FDA-Public Use
  Company Number: US-ABBVIE-15P-163-1478082-00

PATIENT
  Sex: Male

DRUGS (1)
  1. DEPAKOTE [Suspect]
     Active Substance: DIVALPROEX SODIUM
     Indication: MATERNAL EXPOSURE TIMING UNSPECIFIED
     Route: 064

REACTIONS (14)
  - Injury [Unknown]
  - Language disorder [Unknown]
  - Communication disorder [Unknown]
  - Mental disorder [Unknown]
  - Abnormal behaviour [Unknown]
  - Autism spectrum disorder [Unknown]
  - Mental disability [Unknown]
  - Foetal exposure during pregnancy [Unknown]
  - Emotional distress [Unknown]
  - Anhedonia [Unknown]
  - Cognitive disorder [Unknown]
  - Nervous system disorder [Unknown]
  - Multiple injuries [Unknown]
  - Pain [Unknown]
